FAERS Safety Report 7627251-7 (Version None)
Quarter: 2011Q3

REPORT INFORMATION
  Report Type: 
  Country: None (occurrence: None)
  Receive Date: 20110721
  Receipt Date: 20110711
  Transmission Date: 20111222
  Serious: Yes (Disabling, Other)
  Sender: FDA-Public Use
  Company Number: PHFR2011GB02807

PATIENT
  Sex: Male

DRUGS (2)
  1. EXJADE [Suspect]
     Dosage: 200 MG/KG, UNK
     Route: 048
     Dates: start: 20110101, end: 20110201
  2. FOLIC ACID [Concomitant]
     Dosage: 5

REACTIONS (4)
  - PRURITUS [None]
  - BRADYCARDIA [None]
  - DERMATITIS ALLERGIC [None]
  - EXTRASYSTOLES [None]
